FAERS Safety Report 7019625-2 (Version None)
Quarter: 2010Q3

REPORT INFORMATION
  Report Type: 
  Country: None (occurrence: None)
  Receive Date: 20100928
  Receipt Date: 20100928
  Transmission Date: 20110219
  Serious: Yes (Other)
  Sender: FDA-Public Use
  Company Number: None

PATIENT
  Age: 74 Year
  Sex: Male
  Weight: 90.7194 kg

DRUGS (2)
  1. CREST PRO-HEALTH TOOTH PASTE 6.0 OZ SIZE # 95826820, LOT 829353 EXPAUI [Suspect]
     Dosage: 1 TIME PER DAY
     Dates: start: 20100712
  2. METHYLPREDNISOLONE [Suspect]

REACTIONS (4)
  - GINGIVAL PAIN [None]
  - GINGIVAL SWELLING [None]
  - ORAL LICHEN PLANUS [None]
  - ORAL MUCOSAL EXFOLIATION [None]
